FAERS Safety Report 6528954-8 (Version None)
Quarter: 2009Q4

REPORT INFORMATION
  Report Type: 
  Country: None (occurrence: None)
  Receive Date: 20091224
  Receipt Date: 20091208
  Transmission Date: 20100525
  Serious: Yes (Death, Other)
  Sender: FDA-Public Use
  Company Number: 1000010725

PATIENT
  Weight: 1.2 kg

DRUGS (1)
  1. CARBAMAZEPINE [Suspect]
     Dosage: TRANSPLACENTAL
     Route: 064

REACTIONS (4)
  - APGAR SCORE LOW [None]
  - HYDROCEPHALUS [None]
  - MATERNAL DRUGS AFFECTING FOETUS [None]
  - PREMATURE BABY [None]
